FAERS Safety Report 8261810-6 (Version None)
Quarter: 2012Q2

REPORT INFORMATION
  Report Type: 
  Country: None (occurrence: None)
  Receive Date: 20120405
  Receipt Date: 20120328
  Transmission Date: 20120825
  Serious: Yes (Other)
  Sender: FDA-Public Use
  Company Number: FR-VERTEX PHARMACEUTICALS INC.-000000000000000438

PATIENT
  Sex: Male

DRUGS (3)
  1. INCIVO (TELAPREVIR) [Suspect]
     Indication: PRODUCT USED FOR UNKNOWN INDICATION
     Dosage: DOSAGE FORM: TABLET
     Route: 048
     Dates: start: 20120210
  2. COPEGUS [Concomitant]
     Route: 048
     Dates: start: 20120210
  3. PEGASYS [Concomitant]
     Dosage: DOSAGE FORM: INJECTION
     Route: 058
     Dates: start: 20120210

REACTIONS (3)
  - BLOOD CREATININE INCREASED [None]
  - RASH MACULO-PAPULAR [None]
  - HYPERURICAEMIA [None]
